FAERS Safety Report 23956715 (Version 1)
Quarter: 2024Q2

REPORT INFORMATION
  Report Type: Spontaneous
  Country: US (occurrence: US)
  Receive Date: 20240610
  Receipt Date: 20240610
  Transmission Date: 20240716
  Serious: Yes (Hospitalization, Other)
  Sender: FDA-Public Use
  Company Number: US-JNJFOC-20240590209

PATIENT
  Age: 67 Year
  Sex: Male
  Weight: 90.8 kg

DRUGS (31)
  1. SPRAVATO [Suspect]
     Active Substance: ESKETAMINE
     Indication: Product used for unknown indication
  2. TYVASO DPI [Suspect]
     Active Substance: TREPROSTINIL
     Indication: Pulmonary arterial hypertension
     Route: 065
     Dates: start: 20220722
  3. MORPHINE [Suspect]
     Active Substance: MORPHINE
     Route: 065
  4. DICLOFENAC SODIUM [Concomitant]
     Active Substance: DICLOFENAC\DICLOFENAC SODIUM
  5. PENTOXIFYLLINE [Concomitant]
     Active Substance: PENTOXIFYLLINE
  6. MELOXICAM [Concomitant]
     Active Substance: MELOXICAM
  7. CLINDAMYCIN HYDROCHLORIDE [Concomitant]
     Active Substance: CLINDAMYCIN HYDROCHLORIDE
  8. GAS-X MAX STRENGTH [Concomitant]
  9. ENALAPRIL MALEATE [Concomitant]
     Active Substance: ENALAPRIL MALEATE
  10. PANTOPRAZOLE SODIUM [Concomitant]
     Active Substance: PANTOPRAZOLE SODIUM
  11. VITAMINS [Concomitant]
     Active Substance: VITAMINS
  12. VITAMIN B COMPLEX [Concomitant]
     Active Substance: CYANOCOBALAMIN\DEXPANTHENOL\NIACINAMIDE\PYRIDOXINE HYDROCHLORIDE\RIBOFLAVIN 5^-PHOSPHATE SODIUM\THIA
  13. LASIX [Concomitant]
     Active Substance: FUROSEMIDE
  14. AZELASTINE HYDROCHLORIDE [Concomitant]
     Active Substance: AZELASTINE HYDROCHLORIDE
  15. FISH OIL [Concomitant]
     Active Substance: FISH OIL
  16. ALBUTEROL SULFATE [Concomitant]
     Active Substance: ALBUTEROL SULFATE
  17. LIDOCAINE [Concomitant]
     Active Substance: LIDOCAINE
  18. FLONASE ALLERGY RELIEF [Concomitant]
     Active Substance: FLUTICASONE PROPIONATE
  19. TRAMADOL HCL [Concomitant]
     Active Substance: TRAMADOL HYDROCHLORIDE
  20. CHLORPHENIRAMINE MALEATE [Concomitant]
     Active Substance: CHLORPHENIRAMINE MALEATE
  21. OXYGEN [Concomitant]
     Active Substance: OXYGEN
  22. BIFIDOBACTERIUM ANIMALIS LACTIS [Concomitant]
     Active Substance: BIFIDOBACTERIUM ANIMALIS LACTIS
  23. ASPIRIN [Concomitant]
     Active Substance: ASPIRIN
  24. MECLIZINE HYDROCHLORIDE [Concomitant]
     Active Substance: MECLIZINE HYDROCHLORIDE
  25. TRAZODONE HCL [Concomitant]
     Active Substance: TRAZODONE HYDROCHLORIDE
  26. CETIRIZINE HCL [Concomitant]
     Active Substance: CETIRIZINE HYDROCHLORIDE
  27. LOVASTATIN [Concomitant]
     Active Substance: LOVASTATIN
  28. VITAMIN C [Concomitant]
     Active Substance: ASCORBIC ACID
  29. STIOLTO RESPIMAT [Concomitant]
     Active Substance: OLODATEROL HYDROCHLORIDE\TIOTROPIUM BROMIDE MONOHYDRATE
  30. SILDENAFIL CITRATE [Concomitant]
     Active Substance: SILDENAFIL CITRATE
  31. TRIAMCINOLONE ACETONIDE [Concomitant]
     Active Substance: TRIAMCINOLONE ACETONIDE

REACTIONS (7)
  - Pericardial effusion [Unknown]
  - Presyncope [Unknown]
  - Dyspnoea [Unknown]
  - Memory impairment [Unknown]
  - Gait disturbance [Unknown]
  - Mastication disorder [Unknown]
  - Drug hypersensitivity [Unknown]

NARRATIVE: CASE EVENT DATE: 20240523
